FAERS Safety Report 23945895 (Version 4)
Quarter: 2024Q3

REPORT INFORMATION
  Report Type: Spontaneous
  Country: FR (occurrence: FR)
  Receive Date: 20240606
  Receipt Date: 20240816
  Transmission Date: 20241016
  Serious: No
  Sender: PFIZER
  Company Number: FR-PFIZER INC-202400187359

PATIENT
  Age: 75 Year
  Sex: Male

DRUGS (1)
  1. FILGRASTIM [Suspect]
     Active Substance: FILGRASTIM
     Dosage: 30 MUI ML, CYCLIC (CYCLES OF 5 DAYS - 6 MONTHS [AFTER CHEMO])
     Route: 030
     Dates: start: 20240329

REACTIONS (1)
  - Device issue [Unknown]

NARRATIVE: CASE EVENT DATE: 20240611
